FAERS Safety Report 7825298-9 (Version None)
Quarter: 2011Q4

REPORT INFORMATION
  Report Type: 
  Country: None (occurrence: None)
  Receive Date: 20111019
  Receipt Date: 20111012
  Transmission Date: 20120403
  Serious: Yes (Hospitalization)
  Sender: FDA-Public Use
  Company Number: JP-GLAXOSMITHKLINE-B0700438A

PATIENT
  Sex: Male
  Weight: 46 kg

DRUGS (26)
  1. UNIPHYL [Concomitant]
     Indication: EMPHYSEMA
     Dosage: 400MG PER DAY
     Route: 048
     Dates: start: 20091124, end: 20100610
  2. PREDNISOLONE [Concomitant]
     Dosage: 15MG PER DAY
     Route: 048
     Dates: start: 20100225, end: 20100227
  3. MONTELUKAST SODIUM [Concomitant]
     Dosage: 10MG PER DAY
     Route: 048
     Dates: start: 20100225
  4. OLOPATADINE HCL [Concomitant]
     Dosage: 5MG PER DAY
     Route: 048
     Dates: start: 20100304
  5. FLUTICASONE PROPIONATE/SALMETEROL [Suspect]
     Indication: EMPHYSEMA
     Dosage: 500MCG PER DAY
     Route: 055
     Dates: start: 20090924
  6. CALBLOCK [Concomitant]
     Dosage: 8MG PER DAY
     Route: 048
     Dates: start: 20100210
  7. ROXATIDINE ACETATE HCL [Concomitant]
     Dosage: 150MG PER DAY
     Route: 048
     Dates: start: 20100225, end: 20100227
  8. AVELOX [Concomitant]
     Indication: PROPHYLAXIS
     Dosage: 400MG PER DAY
     Route: 048
     Dates: start: 20100304, end: 20100306
  9. DASEN [Concomitant]
     Indication: PROPHYLAXIS
     Dosage: 30MG PER DAY
     Route: 048
     Dates: start: 20091228, end: 20100103
  10. URIEF [Concomitant]
     Dosage: 8MG PER DAY
     Route: 048
  11. CHINESE MEDICINE [Concomitant]
     Dosage: 7.5G PER DAY
     Route: 048
     Dates: start: 20100210, end: 20100301
  12. TRANEXAMIC ACID [Concomitant]
     Indication: PROPHYLAXIS
     Dosage: 750MG PER DAY
     Route: 048
     Dates: start: 20100210, end: 20100222
  13. COR-TYZINE PEDIATRIC NASAL DROPS [Concomitant]
     Route: 045
     Dates: start: 20100611, end: 20100731
  14. MEPTIN AIR [Concomitant]
     Indication: EMPHYSEMA
     Route: 055
     Dates: start: 20100113
  15. CELESTAMINE TAB [Concomitant]
     Route: 048
     Dates: start: 20100210, end: 20100212
  16. ASTOMIN [Concomitant]
     Indication: PROPHYLAXIS
     Dosage: 60MG PER DAY
     Route: 048
     Dates: start: 20100420, end: 20100424
  17. MUCOSTA [Concomitant]
     Dosage: 300MG PER DAY
     Route: 048
     Dates: start: 20100225, end: 20100227
  18. CLARITIN REDITABS [Concomitant]
     Dosage: 10MG PER DAY
     Route: 048
     Dates: start: 20100304
  19. MUCODYNE [Concomitant]
     Indication: EMPHYSEMA
     Dosage: 1500MG PER DAY
     Route: 048
  20. UNIPHYL [Concomitant]
     Dosage: 200MG PER DAY
     Route: 048
     Dates: start: 20100611
  21. DASEN [Concomitant]
     Dosage: 30MG PER DAY
     Route: 048
     Dates: start: 20100210, end: 20100222
  22. CHINESE MEDICINE [Concomitant]
     Indication: PROPHYLAXIS
     Dosage: 7.5G PER DAY
     Route: 048
     Dates: start: 20091228, end: 20100103
  23. POTASSIUM CHLORIDE [Concomitant]
     Dosage: 500ML PER DAY
     Route: 042
     Dates: start: 20100508, end: 20100512
  24. CHINESE MEDICINE [Concomitant]
     Indication: EMPHYSEMA
     Dosage: 7.5G PER DAY
     Route: 048
     Dates: start: 20100210
  25. MUCOSOLVAN [Concomitant]
     Indication: EMPHYSEMA
     Dosage: 45MG PER DAY
     Route: 048
     Dates: start: 20100225
  26. INFLUENZA HA VACCINE [Concomitant]
     Route: 058
     Dates: start: 20091201, end: 20091201

REACTIONS (2)
  - PNEUMONIA [None]
  - BRONCHITIS [None]
